FAERS Safety Report 7051474-1 (Version None)
Quarter: 2010Q4

REPORT INFORMATION
  Report Type: 
  Country: None (occurrence: None)
  Receive Date: 20101019
  Receipt Date: 20101008
  Transmission Date: 20110411
  Serious: Yes (Hospitalization)
  Sender: FDA-Public Use
  Company Number: B0656537A

PATIENT
  Sex: Male

DRUGS (4)
  1. CLAVAMOX [Suspect]
     Indication: BRONCHITIS
     Dosage: 2.3MG PER DAY
     Route: 048
     Dates: start: 20100507, end: 20100514
  2. ASVERIN [Concomitant]
     Dosage: 7.5ML PER DAY
     Route: 048
     Dates: start: 20100505, end: 20100514
  3. PERIACTIN [Concomitant]
     Dosage: 7.5ML PER DAY
     Route: 048
     Dates: start: 20100505, end: 20100514
  4. MUCODYNE [Concomitant]
     Dosage: 9ML PER DAY
     Route: 048
     Dates: start: 20100505, end: 20100514

REACTIONS (3)
  - C-REACTIVE PROTEIN INCREASED [None]
  - GENERALISED ERYTHEMA [None]
  - PRURITUS [None]
